FAERS Safety Report 6900257-9 (Version None)
Quarter: 2010Q3

REPORT INFORMATION
  Report Type: 
  Country: None (occurrence: None)
  Receive Date: 20100803
  Receipt Date: 20100722
  Transmission Date: 20110219
  Serious: Yes (Other)
  Sender: FDA-Public Use
  Company Number: US-WYE-H16414810

PATIENT
  Sex: Female
  Weight: 77.18 kg

DRUGS (13)
  1. EFFEXOR XR [Suspect]
     Dosage: UNKNOWN
     Dates: end: 20100101
  2. NEURONTIN [Concomitant]
     Route: 048
  3. TRICOR [Concomitant]
  4. ALLEGRA [Concomitant]
  5. CARAFATE [Concomitant]
     Dosage: UNKNOWN
  6. LOVAZA [Concomitant]
     Dosage: UNKNOWN
  7. VICODIN [Concomitant]
     Dosage: 7/375 EVERY 6 HOURS AS NEEDED
  8. SOMA [Concomitant]
     Dosage: UNKNOWN
  9. ASCORBIC ACID [Concomitant]
  10. CALCIUM [Concomitant]
     Dosage: UNKNOWN
  11. VITAMIN D [Concomitant]
     Dosage: UNKNOWN
  12. LISINOPRIL [Concomitant]
     Route: 048
  13. PRILOSEC [Concomitant]

REACTIONS (7)
  - ANXIETY [None]
  - BACK DISORDER [None]
  - BACK INJURY [None]
  - CONDITION AGGRAVATED [None]
  - FACIAL BONES FRACTURE [None]
  - MAJOR DEPRESSION [None]
  - PAIN [None]
